FAERS Safety Report 19423250 (Version 9)
Quarter: 2023Q2

REPORT INFORMATION
  Report Type: Spontaneous
  Country: US (occurrence: US)
  Receive Date: 20210616
  Receipt Date: 20230630
  Transmission Date: 20230721
  Serious: No
  Sender: FDA-Public Use
  Company Number: US-PFIZER INC-2021298768

PATIENT
  Age: 82 Year
  Sex: Female

DRUGS (5)
  1. IBRANCE [Suspect]
     Active Substance: PALBOCICLIB
     Dosage: 125 MG
     Dates: start: 20210225, end: 2021
  2. IBRANCE [Suspect]
     Active Substance: PALBOCICLIB
     Dosage: 125 MG
     Dates: start: 20210601
  3. IBRANCE [Suspect]
     Active Substance: PALBOCICLIB
     Dosage: 125 MG
     Dates: start: 20220404
  4. IBRANCE [Suspect]
     Active Substance: PALBOCICLIB
     Dosage: CYCLIC (1 TABLET DAILY DAYS 1-21)
  5. IBRANCE [Suspect]
     Active Substance: PALBOCICLIB
     Dosage: 1 TABLET ONCE DAILY FOR 21 DAYS, 28 DAY-SUPPLY
     Route: 048

REACTIONS (5)
  - Confusional state [Unknown]
  - Herpes zoster [Unknown]
  - Alopecia [Unknown]
  - Hypoaesthesia [Unknown]
  - Malaise [Unknown]
